FAERS Safety Report 9219405 (Version 2)
Quarter: 2013Q2

REPORT INFORMATION
  Report Type: Spontaneous
  Country: US (occurrence: US)
  Receive Date: 20130409
  Receipt Date: 20130619
  Transmission Date: 20140414
  Serious: No
  Sender: FDA-Public Use
  Company Number: US-PFIZER INC-2013107779

PATIENT
  Age: 6 Year
  Sex: Male

DRUGS (6)
  1. LEVOXYL [Suspect]
     Indication: HYPOTHYROIDISM
     Dosage: 25 UG, 1X/DAY
     Route: 048
     Dates: start: 20130222
  2. LEVOXYL [Suspect]
     Dosage: 50 UG, UNK
  3. LEVOXYL [Suspect]
     Dosage: 12.5 UG, 1X/DAY
  4. LEVOXYL [Suspect]
     Dosage: 25 UG, UNK
     Route: 048
  5. LEVOXYL [Suspect]
     Dosage: 30 UG, 1X/DAY
  6. CALCIUM [Concomitant]
     Indication: MINERAL SUPPLEMENTATION
     Dosage: UNK

REACTIONS (6)
  - Diarrhoea [Recovered/Resolved]
  - Psychomotor hyperactivity [Recovering/Resolving]
  - Abnormal dreams [Unknown]
  - Somnambulism [Recovered/Resolved]
  - Affective disorder [Recovered/Resolved]
  - Incoherent [Recovered/Resolved]
